FAERS Safety Report 12738838 (Version 1)
Quarter: 2016Q3

REPORT INFORMATION
  Report Type: Report from Study
  Country: TW (occurrence: TW)
  Receive Date: 20160912
  Receipt Date: 20160912
  Transmission Date: 20161109
  Serious: Yes (Hospitalization)
  Sender: FDA-Public Use
  Company Number: TW-IPCA LABORATORIES LIMITED-IPC201609-000741

PATIENT
  Sex: Female

DRUGS (1)
  1. ALLOPURINOL. [Suspect]
     Active Substance: ALLOPURINOL

REACTIONS (2)
  - Interstitial lung disease [Recovered/Resolved]
  - Stevens-Johnson syndrome [Unknown]
